FAERS Safety Report 21003289 (Version 1)
Quarter: 2022Q2

REPORT INFORMATION
  Report Type: Spontaneous
  Country: IN (occurrence: IN)
  Receive Date: 20220624
  Receipt Date: 20220624
  Transmission Date: 20220721
  Serious: Yes (Other)
  Sender: FDA-Public Use
  Company Number: IN-SERVIER-S22006410

PATIENT
  Age: 39 Year
  Sex: Female

DRUGS (2)
  1. IVABRADINE [Suspect]
     Active Substance: IVABRADINE
     Indication: Cardiovascular event prophylaxis
     Dosage: 5 MG, BID
     Route: 048
     Dates: start: 2021
  2. IVABRADINE [Suspect]
     Active Substance: IVABRADINE
     Indication: Off label use

REACTIONS (2)
  - Photosensitivity reaction [Recovered/Resolved]
  - Hallucination, visual [Recovered/Resolved]
